FAERS Safety Report 16204048 (Version 1)
Quarter: 2019Q2

REPORT INFORMATION
  Report Type: Spontaneous
  Country: FR (occurrence: FR)
  Receive Date: 20190416
  Receipt Date: 20190416
  Transmission Date: 20190711
  Serious: Yes (Hospitalization)
  Sender: FDA-Public Use
  Company Number: FR-TEVA-2019-FR-1037582

PATIENT
  Age: 87 Year
  Sex: Female
  Weight: 65 kg

DRUGS (13)
  1. BETAHISTINE EG 8 MG, COMPRIM? [Concomitant]
     Route: 048
  2. ZAMUDOL L.P. 100 MG, G?LULE ? LIB?RATION PROLONG?E [Concomitant]
     Active Substance: TRAMADOL HYDROCHLORIDE
     Route: 048
  3. LANSOPRAZOLE MYLAN 30 MG, COMPRIM? ORODISPERSIBLE [Concomitant]
     Active Substance: LANSOPRAZOLE
     Route: 048
  4. DIFFU K, G?LULE [Concomitant]
     Active Substance: POTASSIUM CHLORIDE
     Route: 048
  5. FLUOROURACILE [Suspect]
     Active Substance: FLUOROURACIL
     Route: 040
     Dates: start: 20190122, end: 20190122
  6. GABAPENTINE ARROW GENERIQUES 300 MG, G?LULE [Concomitant]
     Route: 048
  7. FLUOROURACILE [Suspect]
     Active Substance: FLUOROURACIL
     Indication: ADENOCARCINOMA
     Route: 041
     Dates: start: 20190122, end: 20190209
  8. CALCIUM (LEVOFOLINATE  DE) [Suspect]
     Active Substance: LEVOLEUCOVORIN CALCIUM
     Indication: ADENOCARCINOMA
     Route: 042
     Dates: start: 20190208, end: 20190208
  9. LASILIX 40 MG, COMPRIM? S?CABLE [Concomitant]
     Active Substance: FUROSEMIDE
     Route: 048
  10. PRIMPERAN [Concomitant]
     Active Substance: METOCLOPRAMIDE HYDROCHLORIDE
     Route: 048
  11. KARDEGIC [Concomitant]
     Active Substance: ASPIRIN DL-LYSINE
     Dosage: SACHET
     Route: 048
  12. ALLOPURINOL ARROW 100 MG, COMPRIM? [Concomitant]
     Active Substance: ALLOPURINOL
     Route: 048
  13. AMLODIPINE ARROW GENERIQUES 5 MG, G?LULE [Concomitant]
     Route: 048

REACTIONS (1)
  - Encephalopathy [Recovering/Resolving]

NARRATIVE: CASE EVENT DATE: 20190210
